FAERS Safety Report 5551565-8 (Version None)
Quarter: 2007Q4

REPORT INFORMATION
  Report Type: 
  Country: None (occurrence: None)
  Receive Date: 20071212
  Receipt Date: 20071130
  Transmission Date: 20080405
  Serious: Yes (Other)
  Sender: FDA-Public Use
  Company Number: US-PFIZER INC-2007077472

PATIENT
  Sex: Female
  Weight: 72.6 kg

DRUGS (18)
  1. CHANTIX [Suspect]
     Indication: SMOKING CESSATION THERAPY
     Route: 048
  2. LIPITOR [Concomitant]
     Indication: BLOOD CHOLESTEROL INCREASED
  3. LYRICA [Concomitant]
  4. LEXAPRO [Concomitant]
     Indication: DEPRESSION
  5. MULTIPLE VITAMIN [Concomitant]
  6. SULFATRIM [Concomitant]
  7. CYSTOSPAZ [Concomitant]
     Dosage: FREQ:AS NEEDED
  8. CARISOPRODOL [Concomitant]
  9. DEPO-MEDROL [Concomitant]
  10. FISH OIL [Concomitant]
  11. CALCIUM [Concomitant]
  12. SULFADINE [Concomitant]
  13. VACCINIUM MACROCARPON [Concomitant]
  14. FIORINAL [Concomitant]
     Indication: HEADACHE
  15. DARVOCET [Concomitant]
  16. DARVON [Concomitant]
  17. COPAXONE [Concomitant]
     Indication: MULTIPLE SCLEROSIS
     Route: 030
  18. SULFATRIM-DS [Concomitant]

REACTIONS (6)
  - HEADACHE [None]
  - MALAISE [None]
  - NAUSEA [None]
  - NERVOUSNESS [None]
  - PAIN [None]
  - ROTATOR CUFF REPAIR [None]
